FAERS Safety Report 10067582 (Version 2)
Quarter: 2014Q2

REPORT INFORMATION
  Report Type: Spontaneous
  Country: US (occurrence: None)
  Receive Date: 20140407
  Receipt Date: 20140418
  Transmission Date: 20141212
  Serious: No
  Sender: FDA-Public Use
  Company Number: 2014-US-002467

PATIENT
  Age: 40 Year
  Sex: Female

DRUGS (1)
  1. XYREM [Suspect]
     Indication: NARCOLEPSY
     Route: 048
     Dates: start: 20140215, end: 2014

REACTIONS (8)
  - Intervertebral disc protrusion [None]
  - Spinal fusion surgery [None]
  - Insomnia [None]
  - Vomiting [None]
  - Nausea [None]
  - Dizziness [None]
  - Muscle spasms [None]
  - Incorrect dose administered [None]
